FAERS Safety Report 15483711 (Version 1)
Quarter: 2018Q4

REPORT INFORMATION
  Report Type: Spontaneous
  Country: MX (occurrence: MX)
  Receive Date: 20181003
  Receipt Date: 20181003
  Transmission Date: 20190205
  Serious: Yes (Hospitalization)
  Sender: FDA-Public Use
  Company Number: None

PATIENT
  Age: 32 Year
  Sex: Male
  Weight: 66 kg

DRUGS (4)
  1. CLONIDINE. [Concomitant]
     Active Substance: CLONIDINE
  2. ANTIBIOTICS [Concomitant]
     Active Substance: UNSPECIFIED INGREDIENT
  3. EPAMIN [Suspect]
     Active Substance: PHENYTOIN SODIUM
     Indication: HEAD INJURY
     Dosage: ?          QUANTITY:1 CAPSULE(S);?
     Route: 048
     Dates: start: 20180901, end: 20180915
  4. EPIFAST [Concomitant]

REACTIONS (9)
  - Dyspnoea [None]
  - Stevens-Johnson syndrome [None]
  - Cheilitis [None]
  - Skin disorder [None]
  - Rash generalised [None]
  - Blister [None]
  - Skin exfoliation [None]
  - Blepharitis [None]
  - Epidermal necrosis [None]

NARRATIVE: CASE EVENT DATE: 20180916
